FAERS Safety Report 23049548 (Version 1)
Quarter: 2023Q4

REPORT INFORMATION
  Report Type: Spontaneous
  Country: US (occurrence: None)
  Receive Date: 20231006
  Receipt Date: 20231006
  Transmission Date: 20240110
  Serious: Yes (Other)
  Sender: FDA-Public Use
  Company Number: None

PATIENT
  Age: 39 Year
  Sex: Female
  Weight: 72 kg

DRUGS (3)
  1. CLENPIQ [Suspect]
     Active Substance: ANHYDROUS CITRIC ACID\MAGNESIUM OXIDE\SODIUM PICOSULFATE
     Indication: Colonoscopy
     Dosage: OTHER QUANTITY : 2 BOTTLES;?OTHER FREQUENCY : 2 TIMES CLEAN OUT;?
     Route: 048
     Dates: start: 20231004, end: 20231004
  2. SYNTHROID [Concomitant]
     Active Substance: LEVOTHYROXINE SODIUM
  3. METOPROLOL [Concomitant]
     Active Substance: METOPROLOL

REACTIONS (5)
  - Arrhythmia [None]
  - Blood sodium decreased [None]
  - Blood chloride decreased [None]
  - Blood potassium decreased [None]
  - Blood glucose increased [None]

NARRATIVE: CASE EVENT DATE: 20231004
